FAERS Safety Report 6993143-X (Version None)
Quarter: 2010Q3

REPORT INFORMATION
  Report Type: 
  Country: None (occurrence: None)
  Receive Date: 20100917
  Receipt Date: 20100209
  Transmission Date: 20110219
  Serious: Yes (Hospitalization, Other)
  Sender: FDA-Public Use
  Company Number: US-ASTRAZENECA-2006UW13931

PATIENT
  Age: 44 Year
  Sex: Male
  Weight: 99.8 kg

DRUGS (23)
  1. SEROQUEL [Suspect]
     Indication: SCHIZOPHRENIA
     Route: 048
     Dates: start: 19990101
  2. SEROQUEL [Suspect]
     Indication: INSOMNIA
     Route: 048
     Dates: start: 19990101
  3. SEROQUEL [Suspect]
     Dosage: 200 MG
     Route: 048
     Dates: start: 20030101
  4. SEROQUEL [Suspect]
     Dosage: 200 MG
     Route: 048
     Dates: start: 20030101
  5. SEROQUEL [Suspect]
     Dosage: 100 MG-600 MG
     Route: 048
     Dates: start: 20030414
  6. SEROQUEL [Suspect]
     Dosage: 100 MG-600 MG
     Route: 048
     Dates: start: 20030414
  7. ZYPREXA [Suspect]
     Dosage: 5-10 MG
     Dates: start: 19980101, end: 20030101
  8. ABILIFY [Concomitant]
     Dates: start: 20030101
  9. GEODON [Concomitant]
     Dates: start: 20020101
  10. RISPERDAL [Concomitant]
     Dates: start: 20030101
  11. PRANDIN [Concomitant]
  12. VYTORIN [Concomitant]
  13. ACTOS [Concomitant]
  14. COZAAR [Concomitant]
  15. LANTUS [Concomitant]
  16. KLONOPIN [Concomitant]
  17. BENZTROPINE MESYLATE [Concomitant]
  18. HYDROCHLOROTHIAZIDE [Concomitant]
  19. GLUCOPHAGE [Concomitant]
  20. AMLODIPINE [Concomitant]
  21. PRAVASTATIN [Concomitant]
  22. ETODOLAC [Concomitant]
  23. TRILEPTAL [Concomitant]

REACTIONS (8)
  - BLOOD CHOLESTEROL INCREASED [None]
  - BLOOD TRIGLYCERIDES INCREASED [None]
  - DIABETES MELLITUS [None]
  - DIABETES MELLITUS INADEQUATE CONTROL [None]
  - HYPERLIPIDAEMIA [None]
  - NEUROLEPTIC MALIGNANT SYNDROME [None]
  - TARDIVE DYSKINESIA [None]
  - TYPE 2 DIABETES MELLITUS [None]
